FAERS Safety Report 15091457 (Version 4)
Quarter: 2018Q4

REPORT INFORMATION
  Report Type: Report from Study
  Country: CN (occurrence: CN)
  Receive Date: 20180629
  Receipt Date: 20181225
  Transmission Date: 20190204
  Serious: Yes (Other)
  Sender: FDA-Public Use
  Company Number: PHHY2018CN027120

PATIENT
  Age: 47 Year
  Sex: Male

DRUGS (30)
  1. NORADRENALIN [Concomitant]
     Active Substance: NOREPINEPHRINE\NOREPINEPHRINE BITARTRATE
     Indication: BLOOD PRESSURE SYSTOLIC ABNORMAL
     Dosage: 2 MG, PRN
     Route: 065
     Dates: start: 20180509, end: 20180509
  2. ESOMEPRAZOLE SODIUM. [Concomitant]
     Active Substance: ESOMEPRAZOLE SODIUM
     Indication: PROPHYLAXIS
     Dosage: 40 MG, PRN
     Route: 042
     Dates: start: 20180509, end: 20180509
  3. MYFORTIC [Suspect]
     Active Substance: MYCOPHENOLATE SODIUM
     Indication: RENAL TRANSPLANT
     Dosage: 1440 MG, QD
     Route: 065
     Dates: start: 20180508, end: 20180508
  4. HYDROTALCITE [Concomitant]
     Active Substance: HYDROTALCITE
     Indication: PROPHYLAXIS
     Dosage: 1000 MG, QD
     Route: 048
     Dates: start: 20180509, end: 20180613
  5. HEPATITIS B IMMUNE GLOBULIN [Concomitant]
     Active Substance: HUMAN HEPATITIS B VIRUS IMMUNE GLOBULIN
     Indication: PROPHYLAXIS
     Dosage: 400 IU, PRN
     Route: 030
     Dates: start: 20180509, end: 20180509
  6. ESOMEPRAZOLE SODIUM. [Concomitant]
     Active Substance: ESOMEPRAZOLE SODIUM
     Dosage: 20 MG, QD
     Route: 048
     Dates: start: 20180512
  7. CLOSTRIDIUM BUTYRICUM [Concomitant]
     Active Substance: CLOSTRIDIUM BUTYRICUM SPORES STRAIN M-55
     Indication: PROPHYLAXIS AGAINST DIARRHOEA
     Dosage: 40 MG, TID
     Route: 048
     Dates: start: 20180509, end: 20180530
  8. CONCOR [Concomitant]
     Active Substance: BISOPROLOL FUMARATE
     Indication: HYPERTENSION
     Dosage: 5 MG, QD
     Route: 048
     Dates: start: 20180529, end: 20180703
  9. NORADRENALIN [Concomitant]
     Active Substance: NOREPINEPHRINE\NOREPINEPHRINE BITARTRATE
     Dosage: 2 MG, ALWAYS
     Route: 065
     Dates: start: 20180509, end: 20180512
  10. ESOMEPRAZOLE SODIUM. [Concomitant]
     Active Substance: ESOMEPRAZOLE SODIUM
     Dosage: 40 MG, QD
     Route: 042
     Dates: start: 20180509, end: 20180512
  11. CEFOPERAZONE SODIUM AND SULBACTAM SODIUM [Concomitant]
     Active Substance: CEFOPERAZONE SODIUM\SULBACTAM SODIUM
     Indication: INFECTION PROPHYLAXIS
     Dosage: 2 G, Q12H
     Route: 042
     Dates: start: 20180509, end: 20180515
  12. SODIUM BICARBONATE. [Concomitant]
     Active Substance: SODIUM BICARBONATE
     Indication: PH URINE INCREASED
     Dosage: 1000 MG, TID
     Route: 048
     Dates: start: 20180529, end: 20180621
  13. MYFORTIC [Suspect]
     Active Substance: MYCOPHENOLATE SODIUM
     Dosage: 720 MG, QD
     Route: 065
     Dates: start: 20180529, end: 20180621
  14. BASILIXIMAB [Suspect]
     Active Substance: BASILIXIMAB
     Indication: RENAL TRANSPLANT
     Dosage: 20 MG, QD
     Route: 065
     Dates: start: 20180508, end: 20180508
  15. FUROSEMIDE. [Concomitant]
     Active Substance: FUROSEMIDE
     Indication: POLYURIA
     Dosage: 20 MG, PRN (INJECTION)
     Route: 042
     Dates: start: 20180509, end: 20180509
  16. NORADRENALIN [Concomitant]
     Active Substance: NOREPINEPHRINE\NOREPINEPHRINE BITARTRATE
     Dosage: 4 MG, PRN
     Route: 065
     Dates: start: 20180510, end: 20180510
  17. COMPOUND GUAIFENESIN [Concomitant]
     Indication: COUGH
     Dosage: 10 ML, TID
     Route: 048
     Dates: start: 20180529, end: 20180625
  18. MYFORTIC [Suspect]
     Active Substance: MYCOPHENOLATE SODIUM
     Indication: IMMUNOSUPPRESSANT DRUG THERAPY
     Dosage: 1080 MG, QD
     Route: 065
     Dates: start: 20180521
  19. PROMETHAZINE [Concomitant]
     Active Substance: PROMETHAZINE\PROMETHAZINE HYDROCHLORIDE
     Indication: SEDATIVE THERAPY
     Dosage: 2 DF, TID
     Route: 048
     Dates: start: 20180509, end: 20180523
  20. MACROGOL 4000 [Concomitant]
     Active Substance: POLYETHYLENE GLYCOL 4000
     Indication: FUNCTIONAL GASTROINTESTINAL DISORDER
     Dosage: 10 G, BID
     Route: 048
     Dates: start: 20180511, end: 20180517
  21. MYFORTIC [Suspect]
     Active Substance: MYCOPHENOLATE SODIUM
     Indication: PROPHYLAXIS
     Dosage: 1440 MG, QD
     Route: 065
     Dates: start: 20180509, end: 20180521
  22. CALCIUM GLUCONATE. [Concomitant]
     Active Substance: CALCIUM GLUCONATE
     Indication: ELECTROLYTE SUBSTITUTION THERAPY
     Dosage: 3 G, PRN
     Route: 042
     Dates: start: 20180509, end: 20180509
  23. CASPOFUNGIN ACETATE. [Concomitant]
     Active Substance: CASPOFUNGIN ACETATE
     Indication: INFECTION PROPHYLAXIS
     Dosage: 50 MG, PRN
     Route: 042
     Dates: start: 20180509, end: 20180509
  24. CASPOFUNGIN ACETATE. [Concomitant]
     Active Substance: CASPOFUNGIN ACETATE
     Dosage: 50 MG, QD
     Route: 042
     Dates: start: 20180509, end: 20180515
  25. GABAPENTIN. [Concomitant]
     Active Substance: GABAPENTIN
     Indication: NEURALGIA
     Dosage: 300 MG, BID
     Route: 048
     Dates: start: 20180522
  26. BASILIXIMAB [Suspect]
     Active Substance: BASILIXIMAB
     Indication: IMMUNOSUPPRESSANT DRUG THERAPY
  27. FUROSEMIDE. [Concomitant]
     Active Substance: FUROSEMIDE
     Indication: DIURETIC THERAPY
     Dosage: 20 MG, QD (TABLET)
     Route: 048
     Dates: start: 20180526
  28. SULPERAZON [Concomitant]
     Active Substance: CEFOPERAZONE SODIUM\SULBACTAM SODIUM
     Indication: INFECTION PROPHYLAXIS
     Dosage: 2 G, Q12H
     Route: 042
     Dates: start: 20180509, end: 20180515
  29. BENIDIPINE [Concomitant]
     Active Substance: BENIDIPINE
     Indication: HYPERTENSION
     Dosage: 8 MG, BID
     Route: 048
     Dates: start: 20180611, end: 20180711
  30. COMPOUND GUAIFENESIN [Concomitant]
     Indication: PRODUCTIVE COUGH

REACTIONS (5)
  - Upper respiratory tract infection [Recovered/Resolved]
  - Anaemia [Recovered/Resolved]
  - Sleep disorder [Recovered/Resolved]
  - Postoperative wound complication [Recovered/Resolved]
  - Delayed graft function [Recovered/Resolved]

NARRATIVE: CASE EVENT DATE: 20180509
